FAERS Safety Report 24875903 (Version 1)
Quarter: 2025Q1

REPORT INFORMATION
  Report Type: Report from Study
  Country: BR (occurrence: BR)
  Receive Date: 20250122
  Receipt Date: 20250122
  Transmission Date: 20250408
  Serious: Yes (Other)
  Sender: ABBVIE
  Company Number: BR-ABBVIE-6096256

PATIENT
  Sex: Female
  Weight: 83 kg

DRUGS (1)
  1. SKYRIZI [Suspect]
     Active Substance: RISANKIZUMAB-RZAA
     Indication: Psoriasis
     Dosage: FORM STRENGTH: SYRINGE 75MG/0.83ML
     Route: 058

REACTIONS (2)
  - Chronic myeloid leukaemia [Unknown]
  - White blood cell count abnormal [Unknown]
